FAERS Safety Report 23873915 (Version 1)
Quarter: 2024Q2

REPORT INFORMATION
  Report Type: Spontaneous
  Country: CH (occurrence: CH)
  Receive Date: 20240520
  Receipt Date: 20240520
  Transmission Date: 20240715
  Serious: Yes (Hospitalization)
  Sender: FDA-Public Use
  Company Number: CH-SM-2024-11905

PATIENT
  Age: 65 Year
  Sex: Female
  Weight: 85.8 kg

DRUGS (16)
  1. METHOTREXATE SODIUM [Suspect]
     Active Substance: METHOTREXATE SODIUM
     Indication: Central nervous system lymphoma
     Dosage: CYCLICAL
     Route: 042
     Dates: start: 20240127, end: 20240127
  2. METHOTREXATE SODIUM [Suspect]
     Active Substance: METHOTREXATE SODIUM
     Indication: Central nervous system lymphoma
     Dosage: CYCLICAL
     Route: 042
     Dates: start: 20240222, end: 20240222
  3. METHOTREXATE SODIUM [Suspect]
     Active Substance: METHOTREXATE SODIUM
     Indication: Central nervous system lymphoma
     Dosage: CYCLICAL
     Route: 042
     Dates: start: 20240314, end: 20240314
  4. METHOTREXATE SODIUM [Suspect]
     Active Substance: METHOTREXATE SODIUM
     Indication: Central nervous system lymphoma
     Dosage: CYCLICAL
     Route: 042
     Dates: start: 20240402, end: 20240402
  5. RITUXIMAB [Suspect]
     Active Substance: RITUXIMAB
     Indication: Central nervous system lymphoma
     Dosage: CYCLICAL
     Route: 042
     Dates: start: 20240126, end: 20240126
  6. RITUXIMAB [Suspect]
     Active Substance: RITUXIMAB
     Indication: Central nervous system lymphoma
     Dosage: CYCLICAL
     Route: 042
     Dates: start: 20240221, end: 20240221
  7. RITUXIMAB [Suspect]
     Active Substance: RITUXIMAB
     Indication: Central nervous system lymphoma
     Dosage: CYCLICAL
     Route: 042
     Dates: start: 20240313, end: 20240313
  8. RITUXIMAB [Suspect]
     Active Substance: RITUXIMAB
     Indication: Central nervous system lymphoma
     Dosage: CYCLICAL
     Route: 042
     Dates: start: 20240402, end: 20240402
  9. CYTARABINE [Suspect]
     Active Substance: CYTARABINE
     Indication: Central nervous system lymphoma
     Dosage: CYCLICAL
     Dates: start: 20240128, end: 20240129
  10. CYTARABINE [Suspect]
     Active Substance: CYTARABINE
     Indication: Central nervous system lymphoma
     Dosage: CYCLICAL
     Route: 042
     Dates: start: 20240223, end: 20240224
  11. CYTARABINE [Suspect]
     Active Substance: CYTARABINE
     Indication: Central nervous system lymphoma
     Dosage: CYCLICAL
     Route: 042
     Dates: start: 20240315, end: 20240316
  12. CYTARABINE [Suspect]
     Active Substance: CYTARABINE
     Indication: Central nervous system lymphoma
     Dosage: CYCLICAL
     Route: 042
     Dates: start: 20240404, end: 20240405
  13. TEPADINA [Suspect]
     Active Substance: THIOTEPA
     Indication: Central nervous system lymphoma
     Dosage: CYCLICAL
     Route: 042
     Dates: start: 20240130, end: 20240130
  14. TEPADINA [Suspect]
     Active Substance: THIOTEPA
     Indication: Central nervous system lymphoma
     Dosage: CYCLICAL
     Route: 042
     Dates: start: 20240225, end: 20240225
  15. TEPADINA [Suspect]
     Active Substance: THIOTEPA
     Indication: Central nervous system lymphoma
     Dosage: CYCLICAL
     Route: 042
     Dates: start: 20240317, end: 20240317
  16. TEPADINA [Suspect]
     Active Substance: THIOTEPA
     Indication: Central nervous system lymphoma
     Dosage: CYCLICAL
     Route: 042
     Dates: start: 20240406, end: 20240406

REACTIONS (1)
  - Liver disorder [Recovering/Resolving]

NARRATIVE: CASE EVENT DATE: 20240129
